FAERS Safety Report 5857757-2 (Version None)
Quarter: 2008Q3

REPORT INFORMATION
  Report Type: 
  Country: None (occurrence: None)
  Receive Date: 20080825
  Receipt Date: 20080825
  Transmission Date: 20090109
  Serious: Yes (Life-Threatening, Hospitalization)
  Sender: FDA-Public Use
  Company Number: None

PATIENT
  Sex: Female
  Weight: 52.1637 kg

DRUGS (2)
  1. ADVAIR DISKUS 100/50 [Suspect]
     Indication: ASTHMA
     Dosage: 2 PUFFS DAILY INHAL
     Route: 055
     Dates: start: 20060915, end: 20061101
  2. ASMANEX TWISTHALER [Suspect]
     Indication: ASTHMA
     Dosage: 2 PUFFS DAILY INHAL
     Route: 055
     Dates: start: 20060915, end: 20061101

REACTIONS (3)
  - DYSPNOEA [None]
  - LUNG DISORDER [None]
  - PAIN [None]
